FAERS Safety Report 23543370 (Version 1)
Quarter: 2024Q1

REPORT INFORMATION
  Report Type: Report from Study
  Country: IN (occurrence: IN)
  Receive Date: 20240220
  Receipt Date: 20240220
  Transmission Date: 20240409
  Serious: Yes (Other)
  Sender: FDA-Public Use
  Company Number: IN-002147023-NVSC2024IN034903

PATIENT
  Age: 58 Year
  Sex: Male

DRUGS (1)
  1. CERTICAN [Suspect]
     Active Substance: EVEROLIMUS
     Indication: Product used for unknown indication
     Dosage: 0.5 MG, BID
     Route: 048
     Dates: start: 20211015

REACTIONS (2)
  - Hepatocellular carcinoma [Unknown]
  - Coeliac disease [Unknown]

NARRATIVE: CASE EVENT DATE: 20231014
